FAERS Safety Report 9619796 (Version 1)
Quarter: 2013Q4

REPORT INFORMATION
  Report Type: Spontaneous
  Country: US (occurrence: US)
  Receive Date: 20131014
  Receipt Date: 20131014
  Transmission Date: 20140711
  Serious: Yes (Disabling)
  Sender: FDA-Public Use
  Company Number: US-PFIZER INC-2013293020

PATIENT
  Age: 53 Year
  Sex: Female
  Weight: 66.67 kg

DRUGS (5)
  1. LYRICA [Suspect]
     Indication: FIBROMYALGIA
     Dosage: 75 MG, 1X/DAY
     Route: 048
     Dates: start: 2009, end: 201304
  2. HYDROCODONE [Concomitant]
     Indication: PAIN
     Dosage: UNK
  3. NEXIUM [Concomitant]
     Indication: GASTRIC DISORDER
     Dosage: UNK
  4. CARAFATE [Concomitant]
     Indication: GASTRIC DISORDER
     Dosage: UNK
  5. ESTRACE [Concomitant]
     Indication: GASTRIC DISORDER
     Dosage: UNK

REACTIONS (1)
  - Fracture [Recovering/Resolving]
